FAERS Safety Report 17117682 (Version 1)
Quarter: 2019Q4

REPORT INFORMATION
  Report Type: Spontaneous
  Country: FR (occurrence: FR)
  Receive Date: 20191205
  Receipt Date: 20191205
  Transmission Date: 20200122
  Serious: Yes (Other)
  Sender: FDA-Public Use
  Company Number: FR-MYLANLABS-2019M1119270

PATIENT
  Age: 1 Year
  Sex: Female
  Weight: 9.97 kg

DRUGS (11)
  1. ACICLOVIR MYLAN 250 MG, POUDRE POUR SOLUTION INJECTABLE (I.V.) [Suspect]
     Active Substance: ACYCLOVIR
     Indication: ORAL HERPES
     Dosage: 300 MILLIGRAM, QD
     Route: 042
     Dates: start: 20190626, end: 20190628
  2. CEFTAZIDIME. [Concomitant]
     Active Substance: CEFTAZIDIME
     Dosage: UNK
  3. ADRIGYL [Concomitant]
     Active Substance: CHOLECALCIFEROL
     Dosage: UNK
  4. ORACILLINE                         /00001805/ [Suspect]
     Active Substance: PENICILLIN V BENZATHINE
     Indication: ANTIBIOTIC PROPHYLAXIS
     Dosage: 100000 INTERNATIONAL UNIT, QD
     Route: 048
     Dates: start: 20190608, end: 20190630
  5. AMPHOTERICINE B [Concomitant]
     Active Substance: AMPHOTERICIN B
     Dosage: UNK
  6. FLUCONAZOLE ARROW [Suspect]
     Active Substance: FLUCONAZOLE
     Indication: ANTIFUNGAL PROPHYLAXIS
     Dosage: 80 MILLIGRAM, QD
     Route: 048
     Dates: start: 20190608, end: 20190701
  7. BACTRIM [Suspect]
     Active Substance: SULFAMETHOXAZOLE\TRIMETHOPRIM
     Indication: ANTIBIOTIC PROPHYLAXIS
     Dosage: 3 DOSAGE FORM, QW
     Route: 048
     Dates: start: 20190603, end: 20190628
  8. LEVOTHYROX [Concomitant]
     Active Substance: LEVOTHYROXINE
     Dosage: UNK
  9. PARACETAMOL [Concomitant]
     Active Substance: ACETAMINOPHEN
     Dosage: UNK
  10. TARGOCID [Suspect]
     Active Substance: TEICOPLANIN
     Indication: FEBRILE BONE MARROW APLASIA
     Dosage: 100 MILLIGRAM, QD
     Route: 042
     Dates: start: 20190620, end: 20190630
  11. FORLAX [Concomitant]
     Active Substance: POLYETHYLENE GLYCOL 4000
     Dosage: UNK

REACTIONS (4)
  - Tachycardia [Recovered/Resolved]
  - Urticaria [Recovered/Resolved]
  - Oedema peripheral [Recovered/Resolved]
  - Cyanosis [Recovered/Resolved]

NARRATIVE: CASE EVENT DATE: 20190626
